FAERS Safety Report 5389359-9 (Version None)
Quarter: 2007Q3

REPORT INFORMATION
  Report Type: 
  Country: None (occurrence: None)
  Receive Date: 20070713
  Receipt Date: 20070713
  Transmission Date: 20080115
  Serious: Yes (Life-Threatening, Hospitalization)
  Sender: FDA-Public Use
  Company Number: None

PATIENT
  Age: 74 Year
  Sex: Male
  Weight: 115.6672 kg

DRUGS (1)
  1. AVANDIA [Suspect]
     Indication: DIABETES MELLITUS
     Dosage: TABLET DAILY PO
     Route: 048
     Dates: start: 20030215, end: 20031030

REACTIONS (11)
  - APHASIA [None]
  - ARRHYTHMIA [None]
  - BLINDNESS UNILATERAL [None]
  - ISCHAEMIC STROKE [None]
  - MEMORY IMPAIRMENT [None]
  - MOVEMENT DISORDER [None]
  - OEDEMA [None]
  - PERONEAL NERVE PALSY [None]
  - SENSORY LOSS [None]
  - SPEECH DISORDER [None]
  - WEIGHT INCREASED [None]
